FAERS Safety Report 13336347 (Version 1)
Quarter: 2017Q1

REPORT INFORMATION
  Report Type: Spontaneous
  Country: US (occurrence: US)
  Receive Date: 20170314
  Receipt Date: 20170314
  Transmission Date: 20170428
  Serious: No
  Sender: FDA-Public Use
  Company Number: US-JAZZ-2016-US-019553

PATIENT
  Sex: Female

DRUGS (36)
  1. DOXEPIN [Concomitant]
     Active Substance: DOXEPIN
  2. ABILIFY [Concomitant]
     Active Substance: ARIPIPRAZOLE
  3. INVEGA ER                             /05724801/ [Concomitant]
  4. GEODON [Concomitant]
     Active Substance: ZIPRASIDONE HYDROCHLORIDE\ZIPRASIDONE MESYLATE
  5. PROGESTERONE. [Concomitant]
     Active Substance: PROGESTERONE
  6. PROVENTIL HFA                      /00139501/ [Concomitant]
  7. XYREM [Suspect]
     Active Substance: SODIUM OXYBATE
     Dosage: 4.5 G, BID
     Route: 048
     Dates: start: 201601
  8. SPIRONOLACTONE. [Concomitant]
     Active Substance: SPIRONOLACTONE
  9. ZITHROMAX [Concomitant]
     Active Substance: AZITHROMYCIN DIHYDRATE
  10. ZOLOFT [Concomitant]
     Active Substance: SERTRALINE HYDROCHLORIDE
  11. ADDERALL [Concomitant]
     Active Substance: AMPHETAMINE ASPARTATE\AMPHETAMINE SULFATE\DEXTROAMPHETAMINE SACCHARATE\DEXTROAMPHETAMINE SULFATE
  12. ALPRAZOLAM ER [Concomitant]
     Active Substance: ALPRAZOLAM
  13. XYREM [Suspect]
     Active Substance: SODIUM OXYBATE
     Indication: NARCOLEPSY
     Dosage: 2.25 G, BID
     Route: 048
     Dates: start: 201103, end: 201108
  14. XYREM [Suspect]
     Active Substance: SODIUM OXYBATE
     Dosage: DOSE ADJUSTMENTS
     Route: 048
     Dates: start: 201108, end: 201112
  15. XYREM [Suspect]
     Active Substance: SODIUM OXYBATE
     Dosage: 4.5 G, BID
     Route: 048
     Dates: start: 201112, end: 2012
  16. XYREM [Suspect]
     Active Substance: SODIUM OXYBATE
     Dosage: 4.5 G, BID
     Route: 048
     Dates: start: 201209, end: 201509
  17. XYREM [Suspect]
     Active Substance: SODIUM OXYBATE
     Dosage: DOSE ADJUSTMENTS
     Route: 048
     Dates: start: 201509, end: 201601
  18. RITALIN [Concomitant]
     Active Substance: METHYLPHENIDATE HYDROCHLORIDE
  19. DIAZEPAM. [Concomitant]
     Active Substance: DIAZEPAM
  20. CLOZAPINE. [Concomitant]
     Active Substance: CLOZAPINE
  21. PROAIR HFA [Concomitant]
     Active Substance: ALBUTEROL SULFATE
  22. TESTOSTERONE CYPIONATE. [Concomitant]
     Active Substance: TESTOSTERONE CYPIONATE
  23. SYNTHROID [Concomitant]
     Active Substance: LEVOTHYROXINE SODIUM
  24. LEXAPRO [Concomitant]
     Active Substance: ESCITALOPRAM OXALATE
  25. DORYX DR                              /00055701/ [Concomitant]
  26. PATANASE [Concomitant]
     Active Substance: OLOPATADINE HYDROCHLORIDE
  27. NORTRIPTYLINE HCL [Concomitant]
     Active Substance: NORTRIPTYLINE HYDROCHLORIDE
  28. GABAPENTIN. [Concomitant]
     Active Substance: GABAPENTIN
  29. METHITEST [Concomitant]
     Active Substance: METHYLTESTOSTERONE
  30. CYTOMEL [Concomitant]
     Active Substance: LIOTHYRONINE SODIUM
  31. LUNESTA [Concomitant]
     Active Substance: ESZOPICLONE
  32. NUVIGIL [Concomitant]
     Active Substance: ARMODAFINIL
  33. MELATONIN [Concomitant]
     Active Substance: MELATONIN
  34. CYCLOBENZAPRINE ER [Concomitant]
  35. FLONASE                            /00908302/ [Concomitant]
     Active Substance: MOMETASONE FUROATE
  36. DICLOFENAC POTASSIUM. [Concomitant]
     Active Substance: DICLOFENAC POTASSIUM

REACTIONS (2)
  - Anxiety [Unknown]
  - Intentional product use issue [Unknown]
